FAERS Safety Report 6160623-9 (Version None)
Quarter: 2009Q2

REPORT INFORMATION
  Report Type: 
  Country: None (occurrence: None)
  Receive Date: 20090416
  Receipt Date: 20090406
  Transmission Date: 20091009
  Serious: Yes (Death)
  Sender: FDA-Public Use
  Company Number: ADE2009-0544

PATIENT
  Age: 33 Year
  Sex: Female

DRUGS (8)
  1. ZIDOVUDINE [Suspect]
  2. RIFAMPICIN [Suspect]
  3. ISONIAZID [Suspect]
     Indication: TUBERCULOSIS
  4. PYRAZINAMIDE [Suspect]
     Indication: TUBERCULOSIS
  5. ITRACONAZOLE [Suspect]
     Indication: ASPERGILLOSIS
  6. LAMIVUDINE [Suspect]
  7. SAQUINAVIR [Suspect]
  8. RITONAVIR [Suspect]

REACTIONS (12)
  - ANAEMIA [None]
  - ASPERGILLOMA [None]
  - BRONCHOPULMONARY ASPERGILLOSIS [None]
  - CANDIDIASIS [None]
  - CD4 LYMPHOCYTES DECREASED [None]
  - CHEST PAIN [None]
  - DRUG LEVEL DECREASED [None]
  - INTERVERTEBRAL DISC DISORDER [None]
  - LEUKOPENIA [None]
  - PRODUCTIVE COUGH [None]
  - SINUSITIS [None]
  - TACHYPNOEA [None]
